FAERS Safety Report 4297785-4 (Version None)
Quarter: 2004Q1

REPORT INFORMATION
  Report Type: 
  Country: None (occurrence: None)
  Receive Date: 20040217
  Receipt Date: 20040217
  Transmission Date: 20041129
  Serious: Yes (Disabling)
  Sender: FDA-Public Use
  Company Number: None

PATIENT
  Age: 39 Year
  Sex: Male
  Weight: 102.0593 kg

DRUGS (4)
  1. PAXIL [Suspect]
     Indication: DEPRESSION
     Dosage: DAILY ORAL
     Route: 048
     Dates: start: 19960625, end: 19990120
  2. PAXIL [Suspect]
     Indication: SCHIZOPHRENIA, PARANOID TYPE
     Dosage: DAILY ORAL
     Route: 048
     Dates: start: 19960625, end: 19990120
  3. HALDOL [Concomitant]
  4. DECANOATE [Concomitant]

REACTIONS (5)
  - AKATHISIA [None]
  - DYSPNOEA [None]
  - DYSTONIA [None]
  - MUSCLE RIGIDITY [None]
  - RESTLESSNESS [None]
